FAERS Safety Report 22682028 (Version 2)
Quarter: 2023Q4

REPORT INFORMATION
  Report Type: Report from Study
  Country: US (occurrence: US)
  Receive Date: 20230707
  Receipt Date: 20231013
  Transmission Date: 20240110
  Serious: Yes (Other)
  Sender: FDA-Public Use
  Company Number: US-UCBSA-2023034318

PATIENT
  Age: 15 Year
  Sex: Female

DRUGS (2)
  1. FINTEPLA [Suspect]
     Active Substance: FENFLURAMINE
     Indication: Lennox-Gastaut syndrome
     Dosage: 5.2 MILLILITER, 2X/DAY (BID)
     Dates: start: 20230228
  2. FINTEPLA [Suspect]
     Active Substance: FENFLURAMINE
     Dosage: 4.5 ML BY MOUTH IN THE MORNING AND 5.5 ML IN THE EVENING
     Route: 048

REACTIONS (8)
  - Seizure [Not Recovered/Not Resolved]
  - Cyst [Not Recovered/Not Resolved]
  - Cyst removal [Not Recovered/Not Resolved]
  - Fatigue [Not Recovered/Not Resolved]
  - Vomiting [Not Recovered/Not Resolved]
  - Poor quality sleep [Not Recovered/Not Resolved]
  - Agitation [Not Recovered/Not Resolved]
  - Product use issue [Unknown]

NARRATIVE: CASE EVENT DATE: 20230703
